FAERS Safety Report 17164232 (Version 8)
Quarter: 2022Q2

REPORT INFORMATION
  Report Type: Spontaneous
  Country: US (occurrence: US)
  Receive Date: 20191217
  Receipt Date: 20220509
  Transmission Date: 20220721
  Serious: No
  Sender: FDA-Public Use
  Company Number: US-PFIZER INC-2019483598

PATIENT
  Age: 69 Year
  Sex: Male

DRUGS (2)
  1. RETACRIT [Suspect]
     Active Substance: EPOETIN ALFA-EPBX
     Indication: Nephrogenic anaemia
     Dosage: 40000 UNITS, MONTHLY
     Route: 058
     Dates: start: 20190304
  2. RETACRIT [Suspect]
     Active Substance: EPOETIN ALFA-EPBX
     Dosage: 40000 UNITS, MONTHLY
     Route: 058

REACTIONS (3)
  - Off label use [Unknown]
  - Product dose omission issue [Unknown]
  - Proteinuria [Unknown]

NARRATIVE: CASE EVENT DATE: 20201101
